FAERS Safety Report 5422465-9 (Version None)
Quarter: 2007Q3

REPORT INFORMATION
  Report Type: 
  Country: None (occurrence: None)
  Receive Date: 20070822
  Receipt Date: 20070814
  Transmission Date: 20080115
  Serious: Yes (Disabling, Other)
  Sender: FDA-Public Use
  Company Number: PHEH2007US05092

PATIENT
  Age: 60 Year
  Sex: Female
  Weight: 83.446 kg

DRUGS (12)
  1. ZELNORM [Suspect]
     Indication: IRRITABLE BOWEL SYNDROME
     Dosage: 6 MG, BID
     Dates: end: 20070410
  2. HYDROCHLOROTHIAZIDE [Concomitant]
     Dosage: 25 MG, QD
     Route: 048
  3. WELLBUTRIN [Concomitant]
     Dosage: 300 MG, QD
     Route: 048
  4. WARFARIN [Concomitant]
     Dosage: 10 MG, QD
     Route: 048
  5. LISINOPRIL [Concomitant]
     Dosage: 20 MG, QD
     Route: 048
  6. NEXIUM [Concomitant]
     Dosage: 40 MG, QD
     Route: 048
  7. GLUMETZA [Concomitant]
     Dosage: 500 MG, BID
     Route: 048
  8. BYETTA [Concomitant]
     Dosage: 10 MEQ, BID
     Route: 058
  9. SYNTHROID [Concomitant]
     Dosage: 50 MEQ, QD
     Route: 048
  10. CALCIUM [Concomitant]
     Dosage: 2 TABS 600 MG, QD
  11. AMBIEN [Concomitant]
     Dosage: 12.5 MG, PRN, QHS
     Route: 048
  12. ALBUTEROL [Suspect]
     Dosage: UNK, QD

REACTIONS (5)
  - AMNESIA [None]
  - CEREBROVASCULAR ACCIDENT [None]
  - DIZZINESS [None]
  - DYSPNOEA [None]
  - MAMMOGRAM ABNORMAL [None]
